FAERS Safety Report 24961719 (Version 4)
Quarter: 2025Q1

REPORT INFORMATION
  Report Type: Spontaneous
  Country: US (occurrence: US)
  Receive Date: 20250212
  Receipt Date: 20250306
  Transmission Date: 20250408
  Serious: No
  Sender: BIOGEN
  Company Number: US-BIOGEN-2025BI01300021

PATIENT
  Sex: Female

DRUGS (1)
  1. TYSABRI [Suspect]
     Active Substance: NATALIZUMAB
     Indication: Multiple sclerosis
     Route: 050
     Dates: start: 20231018

REACTIONS (5)
  - Inappropriate schedule of product administration [Unknown]
  - Brain fog [Unknown]
  - Illness [Unknown]
  - Nasopharyngitis [Recovered/Resolved]
  - Headache [Unknown]
